FAERS Safety Report 15533529 (Version 1)
Quarter: 2018Q4

REPORT INFORMATION
  Report Type: Spontaneous
  Country: JP (occurrence: JP)
  Receive Date: 20181019
  Receipt Date: 20181019
  Transmission Date: 20190205
  Serious: Yes (Other)
  Sender: FDA-Public Use
  Company Number: JP-SPECTRUM PHARMACEUTICALS, INC.-18-F-JP-00371

PATIENT
  Sex: Female

DRUGS (5)
  1. FOLOTYN [Suspect]
     Active Substance: PRALATREXATE
     Dosage: 20 MG/M2, SINGLE
     Route: 042
     Dates: start: 20180405, end: 20180405
  2. FOLOTYN [Suspect]
     Active Substance: PRALATREXATE
     Dosage: 20 MG/M2, SINGLE
     Route: 042
     Dates: start: 20180308, end: 20180308
  3. METHYCOBAL [Concomitant]
     Active Substance: METHYLCOBALAMIN
     Dosage: 1 MG, UNK
     Route: 030
  4. FOLOTYN [Suspect]
     Active Substance: PRALATREXATE
     Dosage: 20 MG/M2, UNK
     Route: 042
     Dates: end: 20180719
  5. FOLOTYN [Suspect]
     Active Substance: PRALATREXATE
     Indication: PRODUCT USED FOR UNKNOWN INDICATION
     Dosage: 30 MG/M2, UNK
     Route: 042
     Dates: start: 20180215, end: 20180301

REACTIONS (7)
  - Stomatitis [Recovering/Resolving]
  - Liver disorder [Recovering/Resolving]
  - Erythema [Not Recovered/Not Resolved]
  - Malignant neoplasm progression [Recovering/Resolving]
  - Skin disorder [Unknown]
  - White blood cell count increased [Unknown]
  - Blood lactate dehydrogenase increased [Unknown]

NARRATIVE: CASE EVENT DATE: 20180228
